FAERS Safety Report 20404066 (Version 1)
Quarter: 2022Q1

REPORT INFORMATION
  Report Type: Report from Study
  Country: US (occurrence: US)
  Receive Date: 20220131
  Receipt Date: 20220131
  Transmission Date: 20220423
  Serious: Yes (Other)
  Sender: FDA-Public Use
  Company Number: US-ABBVIE-21K-163-4013243-00

PATIENT
  Sex: Male

DRUGS (1)
  1. IMBRUVICA [Suspect]
     Active Substance: IBRUTINIB
     Indication: Product used for unknown indication
     Route: 048

REACTIONS (11)
  - Burns third degree [Not Recovered/Not Resolved]
  - Throat irritation [Unknown]
  - Vertigo [Unknown]
  - Pyrexia [Unknown]
  - Chills [Unknown]
  - Cough [Unknown]
  - Infection susceptibility increased [Unknown]
  - Pustule [Recovered/Resolved]
  - Skin infection [Not Recovered/Not Resolved]
  - Bacterial infection [Unknown]
  - Staphylococcal infection [Unknown]
